FAERS Safety Report 7102233 (Version 45)
Quarter: 2020Q2

REPORT INFORMATION
  Report Type: Report from Study
  Country: CA (occurrence: CA)
  Receive Date: 20090901
  Receipt Date: 20200429
  Transmission Date: 20200714
  Serious: Yes (Other)
  Sender: FDA-Public Use
  Company Number: PHHY2009CA22524

PATIENT
  Age: 41 Year
  Sex: Female

DRUGS (18)
  1. SANDOSTATIN LAR DEPOT [Suspect]
     Active Substance: OCTREOTIDE ACETATE
     Dosage: 10 MG, QMO
     Route: 030
     Dates: start: 20130328
  2. OMEPRAZOLE. [Suspect]
     Active Substance: OMEPRAZOLE
     Indication: PRODUCT USED FOR UNKNOWN INDICATION
     Dosage: 20 MG, QD
     Route: 048
     Dates: start: 20170810
  3. SYNTHROID [Concomitant]
     Active Substance: LEVOTHYROXINE SODIUM
     Indication: PRODUCT USED FOR UNKNOWN INDICATION
     Dosage: 0.05 MG, UNK
     Route: 065
  4. SANDOSTATIN LAR DEPOT [Suspect]
     Active Substance: OCTREOTIDE ACETATE
     Dosage: 10 MG, QMO
     Route: 030
     Dates: start: 20120427
  5. MINT-TOPIRAMATE [Suspect]
     Active Substance: TOPIRAMATE
     Dosage: 50 MG, QD
     Route: 065
  6. SANDOSTATIN LAR DEPOT [Suspect]
     Active Substance: OCTREOTIDE ACETATE
     Dosage: 20 MG, QMO
     Route: 030
     Dates: start: 20110411
  7. SANDOSTATIN LAR DEPOT [Suspect]
     Active Substance: OCTREOTIDE ACETATE
     Dosage: 10 MG, QMO
     Route: 030
     Dates: start: 20110909
  8. FISH OIL [Suspect]
     Active Substance: FISH OIL
     Indication: PRODUCT USED FOR UNKNOWN INDICATION
     Route: 065
  9. SANDOSTATIN LAR DEPOT [Suspect]
     Active Substance: OCTREOTIDE ACETATE
     Dosage: 20 MG, QMO (EVERY 4 WEEKS)
     Route: 030
     Dates: start: 20151105
  10. SANDOSTATIN LAR DEPOT [Suspect]
     Active Substance: OCTREOTIDE ACETATE
     Dosage: 20 MG, QMO
     Route: 030
     Dates: start: 20081217
  11. SANDOSTATIN LAR DEPOT [Suspect]
     Active Substance: OCTREOTIDE ACETATE
     Dosage: 20 MG, QMO
     Route: 030
     Dates: start: 20090114
  12. MINT-TOPIRAMATE [Suspect]
     Active Substance: TOPIRAMATE
     Dosage: 100 MG, QD
     Route: 065
  13. AIMOVIG [Suspect]
     Active Substance: ERENUMAB-AOOE
     Indication: MIGRAINE
     Dosage: 140 MG, QMO
     Route: 065
  14. SANDOSTATIN LAR DEPOT [Suspect]
     Active Substance: OCTREOTIDE ACETATE
     Dosage: 20 MG, QMO (EVERY 4 WEEKS)
     Route: 030
     Dates: start: 20100531
  15. SANDOSTATIN LAR DEPOT [Suspect]
     Active Substance: OCTREOTIDE ACETATE
     Indication: ACROMEGALY
     Dosage: 20 MG, QMO  (EVERY 4 WEEKS)
     Route: 030
     Dates: start: 20060707
  16. SANDOSTATIN LAR DEPOT [Suspect]
     Active Substance: OCTREOTIDE ACETATE
     Dosage: 20 MG, QMO (EVERY 4 WEEKS)
     Route: 030
     Dates: start: 20180904
  17. MINT-TOPIRAMATE [Suspect]
     Active Substance: TOPIRAMATE
     Indication: MIGRAINE
     Dosage: 25 MG, QD
     Route: 065
     Dates: start: 20140121
  18. CORTEF [Concomitant]
     Active Substance: HYDROCORTISONE
     Indication: PRODUCT USED FOR UNKNOWN INDICATION
     Dosage: 30 MG, QD (20MG AM AND 10 MG PM)
     Route: 065

REACTIONS (56)
  - Rash [Unknown]
  - Arthritis [Unknown]
  - Blood pressure systolic increased [Unknown]
  - Sneezing [Unknown]
  - Cough [Unknown]
  - Fall [Unknown]
  - Ear infection [Unknown]
  - Pharyngeal erythema [Unknown]
  - Menopausal symptoms [Unknown]
  - Syncope [Unknown]
  - Chest pain [Unknown]
  - Arthralgia [Unknown]
  - Heart rate decreased [Unknown]
  - Abdominal pain [Unknown]
  - Hepatic cyst [Unknown]
  - Back pain [Unknown]
  - Upper limb fracture [Unknown]
  - Oropharyngeal pain [Unknown]
  - Amenorrhoea [Unknown]
  - Cholelithiasis [Unknown]
  - Discomfort [Unknown]
  - Vaginal haemorrhage [Unknown]
  - Urticaria [Unknown]
  - Blood pressure decreased [Unknown]
  - Abdominal discomfort [Unknown]
  - Blood growth hormone increased [Unknown]
  - Abdominal pain upper [Unknown]
  - Abdominal distension [Unknown]
  - Uterine cyst [Unknown]
  - Fatigue [Unknown]
  - Skin discolouration [Unknown]
  - Needle issue [Unknown]
  - Hypoaesthesia [Unknown]
  - Hepatic steatosis [Unknown]
  - Osteoarthritis [Not Recovered/Not Resolved]
  - Hepatic haematoma [Unknown]
  - Gastrooesophageal reflux disease [Unknown]
  - Diarrhoea [Unknown]
  - Nausea [Unknown]
  - Depression [Unknown]
  - Jaw disorder [Unknown]
  - Neck pain [Unknown]
  - Pyrexia [Unknown]
  - Nasopharyngitis [Unknown]
  - Nasal congestion [Unknown]
  - Lymphadenopathy [Unknown]
  - Migraine [Not Recovered/Not Resolved]
  - Injection site pain [Unknown]
  - Muscle spasms [Unknown]
  - Contusion [Recovered/Resolved]
  - Underdose [Unknown]
  - Pain [Unknown]
  - Blood pressure systolic decreased [Unknown]
  - Headache [Unknown]
  - Dyspepsia [Unknown]
  - Injection site pruritus [Unknown]

NARRATIVE: CASE EVENT DATE: 200812
